FAERS Safety Report 7371963-X (Version None)
Quarter: 2011Q1

REPORT INFORMATION
  Report Type: 
  Country: None (occurrence: None)
  Receive Date: 20110324
  Receipt Date: 20110314
  Transmission Date: 20110831
  Serious: Yes (Life-Threatening, Hospitalization, Disabling)
  Sender: FDA-Public Use
  Company Number: US-SANOFI-AVENTIS-2011SA006052

PATIENT
  Age: 81 Year
  Sex: Male
  Weight: 64.41 kg

DRUGS (20)
  1. DIGOXIN [Concomitant]
     Dosage: 0.125 MON-WED-FRI
     Route: 048
  2. FLUCONAZOLE [Concomitant]
     Route: 048
     Dates: end: 20110124
  3. PROTONIX [Concomitant]
     Route: 048
  4. ZOCOR [Concomitant]
     Route: 048
  5. SPIRIVA [Concomitant]
     Route: 055
  6. LASIX [Concomitant]
     Route: 048
  7. FLOMAX [Concomitant]
     Route: 048
  8. K-DUR [Concomitant]
     Route: 048
  9. ALDACTONE [Concomitant]
     Dosage: LOW DOSE
     Route: 048
  10. VITAMIN D [Concomitant]
     Dosage: DOSE:1000 UNIT(S)
     Route: 048
  11. SENOKOT /USA/ [Concomitant]
     Route: 048
  12. DABIGATRAN ETEXILATE [Interacting]
     Indication: ATRIAL FIBRILLATION
     Route: 048
     Dates: start: 20110115, end: 20110125
  13. CORTICOSTEROIDS [Concomitant]
  14. MIRALAX [Concomitant]
     Route: 048
  15. MULTAQ [Suspect]
     Indication: ATRIAL FIBRILLATION
     Route: 048
     Dates: start: 20110111
  16. CARDIZEM CD [Concomitant]
     Route: 048
  17. HYDROCORTISONE [Concomitant]
     Dosage: 20 MG IN THE MORNING, 10 MG AT 6PM
     Route: 048
  18. PROVENTIL [Concomitant]
     Dosage: WHILE AWAKE
     Route: 055
  19. SYNTHROID [Concomitant]
     Route: 048
  20. VIGRAN [Concomitant]
     Route: 048

REACTIONS (19)
  - BLOOD UREA INCREASED [None]
  - URINARY RETENTION [None]
  - DRUG INTERACTION [None]
  - RESPIRATORY FAILURE [None]
  - DYSPNOEA [None]
  - DRUG LEVEL INCREASED [None]
  - GASTROINTESTINAL HAEMORRHAGE [None]
  - ACTIVATED PARTIAL THROMBOPLASTIN TIME PROLONGED [None]
  - ANTICOAGULATION DRUG LEVEL ABOVE THERAPEUTIC [None]
  - PROTHROMBIN TIME PROLONGED [None]
  - RENAL FAILURE ACUTE [None]
  - HYPERKALAEMIA [None]
  - HAEMORRHAGE URINARY TRACT [None]
  - URINE OUTPUT DECREASED [None]
  - ATRIOVENTRICULAR BLOCK COMPLETE [None]
  - THROMBOCYTOPENIA [None]
  - CREATININE RENAL CLEARANCE DECREASED [None]
  - ACIDOSIS [None]
  - CARDIAC ARREST [None]
